FAERS Safety Report 7341730-1 (Version None)
Quarter: 2011Q1

REPORT INFORMATION
  Report Type: 
  Country: None (occurrence: None)
  Receive Date: 20110309
  Receipt Date: 20110222
  Transmission Date: 20110831
  Serious: Yes (Other)
  Sender: FDA-Public Use
  Company Number: DE-JNJFOC-20101101442

PATIENT
  Sex: Female
  Weight: 75 kg

DRUGS (6)
  1. ARCOXIA [Suspect]
     Indication: OSTEOARTHRITIS
     Route: 048
  2. IBUPROFEN [Suspect]
     Indication: OSTEOARTHRITIS
     Route: 048
  3. PLACEBO [Suspect]
     Indication: OSTEOARTHRITIS
     Route: 048
  4. INVESTIGATIONAL DRUG [Suspect]
     Indication: OSTEOARTHRITIS
     Route: 042
  5. ARCOXIA [Suspect]
     Route: 048
  6. IBUPROFEN [Suspect]
     Route: 048

REACTIONS (1)
  - OSTEONECROSIS [None]
